FAERS Safety Report 8389099-8 (Version None)
Quarter: 2012Q2

REPORT INFORMATION
  Report Type: 
  Country: None (occurrence: None)
  Receive Date: 20120528
  Receipt Date: 20120522
  Transmission Date: 20120825
  Serious: Yes (Death, Other)
  Sender: FDA-Public Use
  Company Number: PHHY2012TW044337

PATIENT

DRUGS (2)
  1. GLEEVEC [Suspect]
     Indication: GASTROINTESTINAL STROMAL CANCER
     Dosage: 400 MG, DAILY
  2. SUTENT [Suspect]

REACTIONS (5)
  - METASTASES TO PERITONEUM [None]
  - NEOPLASM PROGRESSION [None]
  - GASTROINTESTINAL STROMAL TUMOUR [None]
  - DEATH [None]
  - NEOPLASM MALIGNANT [None]
